FAERS Safety Report 5047512-8 (Version None)
Quarter: 2006Q3

REPORT INFORMATION
  Report Type: 
  Country: None (occurrence: None)
  Receive Date: 20060710
  Receipt Date: 20060710
  Transmission Date: 20061208
  Serious: Yes (Hospitalization)
  Sender: FDA-Public Use
  Company Number: None

PATIENT
  Sex: Female
  Weight: 75.5 kg

DRUGS (4)
  1. CYCLOPHOSPHAMIDE [Suspect]
     Dosage: 700 MG
  2. DOXORUBICIN HYDROCHLORIDE [Suspect]
     Dosage: 43 MG
  3. G-CSF (FILGRASTIM, AMGEN) [Suspect]
     Dosage: 1500 MCG
  4. BACTRIM DS [Suspect]

REACTIONS (1)
  - PNEUMONIA [None]
